FAERS Safety Report 7040183-0 (Version None)
Quarter: 2010Q4

REPORT INFORMATION
  Report Type: 
  Country: None (occurrence: None)
  Receive Date: 20101012
  Receipt Date: 20101006
  Transmission Date: 20110411
  Serious: Yes (Hospitalization, Other)
  Sender: FDA-Public Use
  Company Number: BE-ROXANE LABORATORIES, INC.-2010-RO-01321RO

PATIENT
  Age: 60 Year
  Sex: Female

DRUGS (1)
  1. LITHIUM CARBONATE [Suspect]
     Indication: BIPOLAR DISORDER
     Dosage: 750 MG

REACTIONS (3)
  - GASTROENTERITIS VIRAL [None]
  - HYPOVOLAEMIA [None]
  - THERAPEUTIC AGENT TOXICITY [None]
